FAERS Safety Report 9403292 (Version 1)
Quarter: 2013Q3

REPORT INFORMATION
  Report Type: Spontaneous
  Country: FR (occurrence: FR)
  Receive Date: 20130716
  Receipt Date: 20130716
  Transmission Date: 20140515
  Serious: Yes (Hospitalization, Other)
  Sender: FDA-Public Use
  Company Number: FR-PFIZER INC-2013205785

PATIENT
  Age: 53 Year
  Sex: Male

DRUGS (2)
  1. EFFEXOR LP [Suspect]
     Indication: DEPRESSION
     Dosage: 150 MG, 1X/DAY
     Route: 048
     Dates: start: 20130201, end: 20130614
  2. LAMICTAL [Suspect]
     Indication: BIPOLAR DISORDER
     Dosage: 125 MG, 1X/DAY
     Route: 048
     Dates: start: 20130201, end: 20130614

REACTIONS (4)
  - Cardiac failure [Not Recovered/Not Resolved]
  - Cardiac failure [Not Recovered/Not Resolved]
  - Congestive cardiomyopathy [Not Recovered/Not Resolved]
  - Ejection fraction decreased [Not Recovered/Not Resolved]
